FAERS Safety Report 8544580-3 (Version None)
Quarter: 2012Q2

REPORT INFORMATION
  Report Type: 
  Country: None (occurrence: None)
  Receive Date: 20120416
  Receipt Date: 20101019
  Transmission Date: 20120825
  Serious: Yes (Other)
  Sender: FDA-Public Use
  Company Number: PHHY2010US70718

PATIENT
  Age: 66 Year
  Sex: Female

DRUGS (3)
  1. DIOVAN [Suspect]
     Dosage: 320 MG, QD
  2. OXYCONTIN [Concomitant]
  3. METOPROLOL TARTRATE [Concomitant]

REACTIONS (2)
  - OEDEMA PERIPHERAL [None]
  - ABDOMINAL DISCOMFORT [None]
